FAERS Safety Report 7478401-7 (Version None)
Quarter: 2011Q2

REPORT INFORMATION
  Report Type: 
  Country: None (occurrence: None)
  Receive Date: 20110513
  Receipt Date: 20100304
  Transmission Date: 20111010
  Serious: Yes (Other)
  Sender: FDA-Public Use
  Company Number: US-PFIZER INC-2010028868

PATIENT
  Age: 26 Year
  Sex: Male

DRUGS (2)
  1. AZULFIDINE [Suspect]
     Dosage: UNK
  2. MESALAMINE [Suspect]
     Dosage: UNK

REACTIONS (1)
  - PERICARDITIS [None]
